FAERS Safety Report 7603547-X (Version None)
Quarter: 2011Q3

REPORT INFORMATION
  Report Type: 
  Country: None (occurrence: None)
  Receive Date: 20110712
  Receipt Date: 20110708
  Transmission Date: 20111222
  Serious: Yes (Hospitalization)
  Sender: FDA-Public Use
  Company Number: NZ-ABBOTT-11P-118-0836294-03

PATIENT
  Sex: Male

DRUGS (25)
  1. HUMIRA [Suspect]
     Indication: CROHN'S DISEASE
     Dosage: BASELINE
     Route: 058
     Dates: start: 20091009, end: 20091009
  2. MORPHINE [Concomitant]
     Indication: ABDOMINAL PAIN
     Dosage: 10-20 MG
     Dates: start: 20091030
  3. ENTOCORT EC [Concomitant]
     Dates: start: 20100128, end: 20110429
  4. PREDNISONE [Concomitant]
     Dates: start: 20101224, end: 20110128
  5. PREDNISONE [Concomitant]
     Dates: start: 20110427, end: 20110701
  6. ALBUTEROL [Concomitant]
     Indication: OBSTRUCTIVE AIRWAYS DISORDER
  7. FLUTICASONE PROPIONATE [Concomitant]
     Indication: RESPIRATORY TRACT OEDEMA
     Dosage: 50-100 MCG
     Dates: start: 20101223
  8. CHOLECALCIFEROL [Concomitant]
     Indication: BONE DENSITY ABNORMAL
     Dates: start: 20101112
  9. HUMIRA [Suspect]
     Route: 058
  10. METHADONE HCL [Concomitant]
     Dates: start: 20101224
  11. ACETAMINOPHEN [Concomitant]
     Indication: ABDOMINAL PAIN
     Dates: start: 20091027
  12. PREDNISONE [Concomitant]
     Dates: start: 20100127
  13. CATAPRES [Concomitant]
     Indication: HYPERTENSION
     Route: 061
     Dates: start: 20091027
  14. LACTULOSE [Concomitant]
     Indication: CONSTIPATION PROPHYLAXIS
     Dosage: 20-40 ML
     Dates: start: 20091029
  15. ENTOCORT EC [Concomitant]
     Indication: CROHN'S DISEASE
     Dates: start: 20091027, end: 20100128
  16. PREDNISONE [Concomitant]
     Indication: RESPIRATORY TRACT OEDEMA
     Dates: start: 20091102
  17. PREDNISONE [Concomitant]
     Dates: start: 20110413, end: 20110427
  18. MORPHINE SULFATE [Concomitant]
     Indication: ABDOMINAL PAIN
     Dosage: 10 TO 20
     Dates: start: 20100728, end: 20110705
  19. PREDNISONE [Concomitant]
     Indication: CROHN'S DISEASE
     Dates: start: 20091027, end: 20091102
  20. ENSURE [Concomitant]
     Indication: PRODUCT USED FOR UNKNOWN INDICATION
     Dates: start: 20091027
  21. ALBUTEROL [Concomitant]
     Indication: ASTHMA
     Dosage: 100-200 MCG
     Dates: start: 20101223
  22. HUMIRA [Suspect]
  23. GABAPENTIN [Concomitant]
     Indication: ABDOMINAL PAIN
     Dosage: 300 TO 900
     Dates: start: 20091027
  24. METHADONE HCL [Concomitant]
     Indication: ABDOMINAL PAIN
     Dosage: 5-20 MG
     Dates: start: 20091027
  25. PREDNISONE [Concomitant]
     Dates: start: 20100429, end: 20110413

REACTIONS (2)
  - ANAEMIA [None]
  - MELAENA [None]
